FAERS Safety Report 16379628 (Version 6)
Quarter: 2022Q3

REPORT INFORMATION
  Report Type: Spontaneous
  Country: GB (occurrence: GB)
  Receive Date: 20190531
  Receipt Date: 20220815
  Transmission Date: 20221026
  Serious: Yes (Hospitalization, Other)
  Sender: FDA-Public Use
  Company Number: None

PATIENT
  Age: 21 Year
  Sex: Female

DRUGS (15)
  1. GABAPENTIN [Suspect]
     Active Substance: GABAPENTIN
     Dosage: 900 MG, 1X/DAY, DOSAGE FORM: UNSPECIFIED
     Route: 048
  2. PREGABALIN [Suspect]
     Active Substance: PREGABALIN
     Dosage: UNK, DOSAGE FORM: UNSPECIFIED
     Route: 065
  3. AMITRIPTYLINE [Suspect]
     Active Substance: AMITRIPTYLINE
     Dosage: 100 MG, 1X/DAY (AT NIGHT)
     Route: 048
  4. PRUCALOPRIDE [Suspect]
     Active Substance: PRUCALOPRIDE
     Dosage: 2 MG, 1X/DAY
     Route: 048
  5. COCODAMOL [Suspect]
     Active Substance: ACETAMINOPHEN\CODEINE PHOSPHATE
     Dosage: 8 DF, 1X/DAY (30MG / 500MG)
     Route: 048
  6. TRAMADOL [Suspect]
     Active Substance: TRAMADOL
     Dosage: UNK DOSAGE FORM: UNSPECIFIED
     Route: 065
  7. DOMPERIDONE [Suspect]
     Active Substance: DOMPERIDONE
     Dosage: 10 MG, UNK (UP TO THREE TIMES A DAY)
     Route: 048
  8. BETAHISTINE [Suspect]
     Active Substance: BETAHISTINE
     Dosage: 24 MG, 1X/DAY, DOSAGE FORM: UNSPECIFIED
     Route: 048
  9. CYCLIZINE [Suspect]
     Active Substance: CYCLIZINE
     Dosage: UNK DOSAGE FORM: UNSPECIFIED
     Route: 065
  10. METOCLOPRAMIDE [Suspect]
     Active Substance: METOCLOPRAMIDE
     Dosage: UNK
  11. LANSOPRAZOLE [Concomitant]
     Active Substance: LANSOPRAZOLE
     Dosage: 30 MG, 2X/DAY
     Route: 048
  12. HYDROCORTISONE [Concomitant]
     Active Substance: HYDROCORTISONE
  13. IBUPROFEN [Concomitant]
     Active Substance: IBUPROFEN
     Dosage: UNK
  14. OMEPRAZOLE [Concomitant]
     Active Substance: OMEPRAZOLE
     Dosage: UNK
  15. SUMATRIPTAN [Concomitant]
     Active Substance: SUMATRIPTAN
     Dosage: UNK

REACTIONS (2)
  - Hyperprolactinaemia [Recovering/Resolving]
  - Pituitary tumour benign [Unknown]
